FAERS Safety Report 9265398 (Version 1)
Quarter: 2013Q2

REPORT INFORMATION
  Report Type: Spontaneous
  Country: FR (occurrence: FR)
  Receive Date: 20130501
  Receipt Date: 20130501
  Transmission Date: 20140414
  Serious: Yes (Hospitalization)
  Sender: FDA-Public Use
  Company Number: FR-SANOFI-AVENTIS-2013SA042832

PATIENT
  Age: 47 Year
  Sex: Male

DRUGS (10)
  1. LASILIX [Suspect]
     Indication: PRODUCT USED FOR UNKNOWN INDICATION
     Route: 065
  2. PEGASYS [Suspect]
     Indication: PRODUCT USED FOR UNKNOWN INDICATION
     Route: 065
     Dates: start: 20121214, end: 201302
  3. REBETOL [Suspect]
     Indication: PRODUCT USED FOR UNKNOWN INDICATION
     Route: 065
     Dates: start: 20121214, end: 201302
  4. INCIVO [Suspect]
     Indication: PRODUCT USED FOR UNKNOWN INDICATION
     Route: 065
     Dates: start: 20121214, end: 201302
  5. PERINDOPRIL [Suspect]
     Indication: PRODUCT USED FOR UNKNOWN INDICATION
     Route: 065
  6. PREVISCAN [Suspect]
     Indication: PRODUCT USED FOR UNKNOWN INDICATION
     Dosage: STRENGTH- 20 MG
     Route: 065
  7. TARDYFERON B(9) [Concomitant]
  8. ALPRAZOLAM [Concomitant]
  9. INEXIUM [Concomitant]
     Dosage: STRENGTH: 20 MG
  10. CRESTOR [Concomitant]

REACTIONS (6)
  - Bicytopenia [Recovering/Resolving]
  - Oedema peripheral [Recovered/Resolved]
  - Pruritus [Recovered/Resolved]
  - Urticaria [Recovered/Resolved]
  - Renal failure [Recovering/Resolving]
  - Blood creatinine increased [Recovering/Resolving]
